FAERS Safety Report 24969154 (Version 1)
Quarter: 2025Q1

REPORT INFORMATION
  Report Type: Report from Study
  Country: US (occurrence: US)
  Receive Date: 20250214
  Receipt Date: 20250214
  Transmission Date: 20250409
  Serious: No
  Sender: AMNEAL
  Company Number: US-AMNEAL PHARMACEUTICALS-2024-AMRX-01014

PATIENT
  Sex: Female
  Weight: 54.422 kg

DRUGS (1)
  1. CARBIDOPA\LEVODOPA [Suspect]
     Active Substance: CARBIDOPA\LEVODOPA
     Indication: Parkinson^s disease
     Dosage: 48.75/195 MILLIGRAM 2 CAPSULES, 4 /DAY
     Route: 048

REACTIONS (2)
  - Hypoacusis [Unknown]
  - Product use issue [Unknown]
